FAERS Safety Report 19464789 (Version 2)
Quarter: 2021Q2

REPORT INFORMATION
  Report Type: Spontaneous
  Country: US (occurrence: US)
  Receive Date: 20210626
  Receipt Date: 20210626
  Transmission Date: 20210717
  Serious: No
  Sender: FDA-Public Use
  Company Number: US-ABBVIE-21K-163-3946101-00

PATIENT

DRUGS (1)
  1. SKYRIZI [Suspect]
     Active Substance: RISANKIZUMAB-RZAA
     Indication: PSORIASIS
     Route: 058
     Dates: start: 20210602

REACTIONS (4)
  - Dry skin [Unknown]
  - Skin plaque [Unknown]
  - Skin tightness [Unknown]
  - Pain of skin [Unknown]

NARRATIVE: CASE EVENT DATE: 202106
